FAERS Safety Report 8064767-6 (Version None)
Quarter: 2012Q1

REPORT INFORMATION
  Report Type: 
  Country: None (occurrence: None)
  Receive Date: 20120124
  Receipt Date: 20120111
  Transmission Date: 20120608
  Serious: Yes (Hospitalization)
  Sender: FDA-Public Use
  Company Number: FR-BRISTOL-MYERS SQUIBB COMPANY-16349383

PATIENT
  Age: 36 Year
  Sex: Male

DRUGS (2)
  1. ABILIFY [Suspect]
     Indication: PSYCHOTIC DISORDER
     Route: 048
     Dates: start: 20110102, end: 20110301
  2. KEPPRA [Concomitant]
     Indication: EPILEPSY
     Dosage: FILM-COATED TABLET
     Route: 048
     Dates: start: 20100701

REACTIONS (2)
  - EXFOLIATIVE RASH [None]
  - LICE INFESTATION [None]
